FAERS Safety Report 4851282-3 (Version None)
Quarter: 2005Q4

REPORT INFORMATION
  Report Type: 
  Country: None (occurrence: None)
  Receive Date: 20051209
  Receipt Date: 20051205
  Transmission Date: 20060501
  Serious: Yes (Other)
  Sender: FDA-Public Use
  Company Number: S05-USA-05102-01

PATIENT
  Age: 55 Year
  Sex: Female

DRUGS (2)
  1. LEXAPRO [Suspect]
     Indication: CONVULSION
     Dosage: 20 MG BID PO
     Route: 048
     Dates: end: 20050101
  2. LEXAPRO [Suspect]
     Indication: CONVULSION
     Dosage: 20 MG BID PO
     Route: 048
     Dates: start: 20050101

REACTIONS (2)
  - CONDITION AGGRAVATED [None]
  - CONVULSION [None]
